FAERS Safety Report 10046981 (Version 3)
Quarter: 2014Q2

REPORT INFORMATION
  Report Type: Spontaneous
  Country: GB (occurrence: GB)
  Receive Date: 20140331
  Receipt Date: 20140521
  Transmission Date: 20141212
  Serious: Yes (Hospitalization)
  Sender: FDA-Public Use
  Company Number: PHFR2014GB002481

PATIENT
  Age: 41 Year
  Sex: Male

DRUGS (7)
  1. CLOZARIL [Suspect]
     Indication: SCHIZOPHRENIA, PARANOID TYPE
     Dosage: UNK
     Route: 048
     Dates: start: 20100609
  2. CLOZARIL [Suspect]
     Dosage: 350 MG,
     Route: 048
     Dates: start: 20140325
  3. SULPIRIDE [Concomitant]
     Indication: SCHIZOPHRENIA, PARANOID TYPE
     Dosage: 200 MG, UNK
     Route: 048
  4. METFORMIN [Concomitant]
     Indication: DIABETES MELLITUS
     Dosage: 1 G,
     Route: 048
  5. BISOPROLOL [Concomitant]
     Dosage: 5 MG,
     Route: 048
  6. SIMVASTATIN [Concomitant]
     Dosage: 40 MG,
     Route: 048
  7. BEZAFIBRATE [Concomitant]
     Dosage: 400 MG,
     Route: 048

REACTIONS (5)
  - Dehydration [Unknown]
  - Respiratory tract infection [Recovered/Resolved]
  - Renal failure acute [Recovered/Resolved]
  - White blood cell count increased [Recovered/Resolved]
  - Haemoglobin decreased [Unknown]
